FAERS Safety Report 10730994 (Version 1)
Quarter: 2015Q1

REPORT INFORMATION
  Report Type: Spontaneous
  Country: US (occurrence: None)
  Receive Date: 20150120
  Receipt Date: 20150120
  Transmission Date: 20150721
  Serious: Yes (Life-Threatening, Hospitalization)
  Sender: FDA-Public Use
  Company Number: None

PATIENT
  Age: 56 Year
  Sex: Female
  Weight: 77.11 kg

DRUGS (3)
  1. CARVEDILOL. [Suspect]
     Active Substance: CARVEDILOL
     Indication: HYPERTENSION
     Dosage: 1  TAKEN BY MOUTH
     Route: 048
     Dates: start: 20140107, end: 20150113
  2. CARVEDILOL. [Suspect]
     Active Substance: CARVEDILOL
     Indication: CORONARY ARTERY BYPASS
     Dosage: 1  TAKEN BY MOUTH
     Route: 048
     Dates: start: 20140107, end: 20150113
  3. CARVEDILOL. [Suspect]
     Active Substance: CARVEDILOL
     Indication: MYOCARDIAL INFARCTION
     Dosage: 1  TAKEN BY MOUTH
     Route: 048
     Dates: start: 20140107, end: 20150113

REACTIONS (7)
  - Vaginal discharge [None]
  - Asthenia [None]
  - Pain [None]
  - Colonic abscess [None]
  - Diverticulitis [None]
  - Refusal of treatment by patient [None]
  - Urticaria [None]

NARRATIVE: CASE EVENT DATE: 20150113
